FAERS Safety Report 6657091-7 (Version None)
Quarter: 2010Q1

REPORT INFORMATION
  Report Type: 
  Country: None (occurrence: None)
  Receive Date: 20100330
  Receipt Date: 20100322
  Transmission Date: 20100710
  Serious: Yes (Hospitalization)
  Sender: FDA-Public Use
  Company Number: US-JNJFOC-20100301754

PATIENT
  Sex: Male

DRUGS (1)
  1. LEVAQUIN [Suspect]
     Indication: SINUSITIS
     Route: 065

REACTIONS (7)
  - BACK DISORDER [None]
  - FALL [None]
  - FEELING OF BODY TEMPERATURE CHANGE [None]
  - LOSS OF CONSCIOUSNESS [None]
  - NECK PAIN [None]
  - SKIN LACERATION [None]
  - WRIST FRACTURE [None]
